FAERS Safety Report 5115061-4 (Version None)
Quarter: 2006Q3

REPORT INFORMATION
  Report Type: 
  Country: None (occurrence: None)
  Receive Date: 20060926
  Receipt Date: 20060912
  Transmission Date: 20061208
  Serious: Yes (Hospitalization)
  Sender: FDA-Public Use
  Company Number: CH-JNJFOC-20060904713

PATIENT
  Age: 66 Year
  Sex: Male

DRUGS (8)
  1. TRAMADOL HCL [Suspect]
     Route: 065
  2. TRAMADOL HCL [Suspect]
     Indication: BACK PAIN
     Route: 065
  3. ISOSORBIDE DINITRATE [Concomitant]
     Route: 065
  4. METOPROLOL [Concomitant]
     Indication: CORONARY ARTERY DISEASE
     Route: 065
  5. SIMVASTATIN [Concomitant]
     Indication: HYPERCHOLESTEROLAEMIA
     Route: 065
  6. PARACETAMOL [Concomitant]
     Indication: BACK PAIN
  7. CLOPIDOGREL [Concomitant]
  8. ACETYLSALICYLATE SODIUM [Concomitant]

REACTIONS (2)
  - ACCIDENTAL OVERDOSE [None]
  - DELIRIUM [None]
